FAERS Safety Report 11863258 (Version 1)
Quarter: 2015Q4

REPORT INFORMATION
  Report Type: Spontaneous
  Country: US (occurrence: None)
  Receive Date: 20151222
  Receipt Date: 20151222
  Transmission Date: 20160305
  Serious: No
  Sender: FDA-Public Use
  Company Number: None

PATIENT
  Age: 53 Year
  Sex: Female
  Weight: 52.16 kg

DRUGS (1)
  1. PICATO [Suspect]
     Active Substance: INGENOL MEBUTATE
     Indication: ACTINIC KERATOSIS
     Dosage: 1 TUBE/DAY, APPLIED TO A SURFACE, USUALLY THE SKIN
     Dates: start: 20150907, end: 20150909

REACTIONS (2)
  - Drug ineffective [None]
  - Pruritus [None]

NARRATIVE: CASE EVENT DATE: 20150907
